FAERS Safety Report 9181896 (Version 1)
Quarter: 2013Q1

REPORT INFORMATION
  Report Type: Spontaneous
  Country: IT (occurrence: IT)
  Receive Date: 20130322
  Receipt Date: 20130322
  Transmission Date: 20140127
  Serious: Yes (Other)
  Sender: FDA-Public Use
  Company Number: IT-PFIZER INC-2013092416

PATIENT
  Age: 58 Year
  Sex: Male

DRUGS (5)
  1. MEDROL [Suspect]
     Indication: COLITIS ULCERATIVE
     Dosage: 48MG DAILY
     Route: 048
     Dates: start: 20120721, end: 20120830
  2. ASACOL [Concomitant]
     Dosage: 2 G, UNK
     Route: 054
     Dates: start: 20120820, end: 20120827
  3. LASIX [Concomitant]
     Dosage: 25 MG, UNK
     Route: 048
     Dates: start: 20120820, end: 20120827
  4. LUCEN [Concomitant]
     Dosage: 40 MG, UNK
     Route: 048
     Dates: start: 20120820, end: 20120827
  5. BENTELAN [Concomitant]
     Dosage: 1.5 MG, UNK
     Dates: start: 20120820, end: 20120827

REACTIONS (1)
  - Diabetes mellitus [Recovering/Resolving]
